FAERS Safety Report 12709252 (Version 1)
Quarter: 2016Q3

REPORT INFORMATION
  Report Type: Spontaneous
  Country: FR (occurrence: None)
  Receive Date: 20160901
  Receipt Date: 20160901
  Transmission Date: 20161109
  Serious: Yes (Life-Threatening, Disabling)
  Sender: FDA-Public Use
  Company Number: None

PATIENT
  Age: 28 Year
  Sex: Male
  Weight: 72 kg

DRUGS (6)
  1. PROPECIA [Concomitant]
     Active Substance: FINASTERIDE
  2. VITAMIN D [Concomitant]
     Active Substance: CHOLECALCIFEROL
  3. ZINC [Concomitant]
     Active Substance: ZINC\ZINC CHLORIDE
  4. CHIBRO-PROSCAR [Suspect]
     Active Substance: FINASTERIDE
     Indication: ALOPECIA
     Route: 055
  5. TRIBULUS [Concomitant]
  6. MAGNESIUM TAURIN [Concomitant]

REACTIONS (9)
  - Loss of libido [None]
  - Depression [None]
  - Orgasmic sensation decreased [None]
  - Erectile dysfunction [None]
  - Anhedonia [None]
  - Emotional disorder [None]
  - Listless [None]
  - Tinnitus [None]
  - Fatigue [None]

NARRATIVE: CASE EVENT DATE: 20070101
